FAERS Safety Report 8440242-1 (Version None)
Quarter: 2012Q2

REPORT INFORMATION
  Report Type: 
  Country: None (occurrence: None)
  Receive Date: 20120615
  Receipt Date: 20120607
  Transmission Date: 20120825
  Serious: Yes (Other)
  Sender: FDA-Public Use
  Company Number: US-ROCHE-1075401

PATIENT
  Sex: Female
  Weight: 501.22 kg

DRUGS (14)
  1. TRAMADOL HCL [Concomitant]
     Dosage: TAKE 1 TO 2 TABLETS 3 TIMES AS NEEDED
     Route: 048
     Dates: start: 20120503
  2. PROZAC [Concomitant]
     Route: 048
     Dates: start: 20120604
  3. GABAPENTIN [Concomitant]
     Dosage: CAPSULE 2 ORAL THREE TIMES DAILY
     Route: 048
     Dates: start: 20120503
  4. PREDNISONE TAB [Concomitant]
     Dosage: TABLET 3 ORAL DAILY
     Route: 048
     Dates: start: 20120412
  5. HYDROXYCHLOROQUINE SULFATE [Concomitant]
     Route: 048
     Dates: start: 20120604
  6. PREMPRO [Concomitant]
     Dosage: 0.3 - 1.5 TABLET
     Route: 048
  7. LOVAZA [Concomitant]
     Dosage: 350 CAPSULE 1 TWICE ORAL DAILY
     Route: 048
  8. CELEBREX [Concomitant]
     Route: 048
     Dates: start: 20120604
  9. PREDNISONE TAB [Concomitant]
     Dosage: TAKE 1 TABLET TWICE A DAILY
     Route: 048
     Dates: start: 20100609
  10. ARAVA [Concomitant]
     Route: 046
     Dates: start: 20120604
  11. HYDROXYZINE HCL [Concomitant]
     Route: 048
     Dates: start: 20120503
  12. ACTEMRA [Suspect]
     Indication: RHEUMATOID ARTHRITIS
     Route: 042
     Dates: start: 20120201, end: 20120503
  13. FLEXERIL [Concomitant]
     Dosage: 10 TABLET 1 ORAL EVERY NIGHT
     Route: 048
  14. PRILOSEC [Concomitant]
     Dosage: 2.5 PACKET
     Route: 048

REACTIONS (3)
  - HEART RATE INCREASED [None]
  - CHEST PAIN [None]
  - THROAT IRRITATION [None]
